FAERS Safety Report 7498488-5 (Version None)
Quarter: 2011Q2

REPORT INFORMATION
  Report Type: 
  Country: None (occurrence: None)
  Receive Date: 20110516
  Receipt Date: 20110503
  Transmission Date: 20111010
  Serious: Yes (Hospitalization)
  Sender: FDA-Public Use
  Company Number: 2011MA004887

PATIENT
  Age: 23 Year
  Sex: Male

DRUGS (4)
  1. ISONIAZID [Concomitant]
  2. ETHAMBUTOL [Concomitant]
  3. PYRAZINAMIDE [Concomitant]
  4. RIFAMPIN [Suspect]
     Indication: TUBERCULOSIS

REACTIONS (5)
  - JAUNDICE CHOLESTATIC [None]
  - HEPATIC ENZYME INCREASED [None]
  - UNEVALUABLE EVENT [None]
  - LARGE INTESTINAL ULCER [None]
  - PARADOXICAL DRUG REACTION [None]
